FAERS Safety Report 5525146-6 (Version None)
Quarter: 2007Q4

REPORT INFORMATION
  Report Type: 
  Country: None (occurrence: None)
  Receive Date: 20071126
  Receipt Date: 20071113
  Transmission Date: 20080405
  Serious: Yes (Other)
  Sender: FDA-Public Use
  Company Number: NLWYE012614MAR07

PATIENT
  Sex: Male
  Weight: 13 kg

DRUGS (3)
  1. REFACTO [Suspect]
     Indication: FACTOR VIII DEFICIENCY
     Dosage: UNKNOWN
     Route: 042
     Dates: start: 20050211
  2. REFACTO [Suspect]
     Route: 042
     Dates: start: 20070126, end: 20070226
  3. REFACTO [Suspect]
     Route: 042
     Dates: start: 20070227

REACTIONS (3)
  - FACTOR VIII INHIBITION [None]
  - HAEMORRHAGE [None]
  - SYNOVITIS [None]
